FAERS Safety Report 4425115-3 (Version None)
Quarter: 2004Q3

REPORT INFORMATION
  Report Type: 
  Country: None (occurrence: None)
  Receive Date: 20040813
  Receipt Date: 20040728
  Transmission Date: 20050211
  Serious: Yes (Other)
  Sender: FDA-Public Use
  Company Number: PHBS2004BE09962

PATIENT
  Age: 40 Year
  Sex: Female

DRUGS (3)
  1. PARLODEL [Suspect]
     Indication: PARKINSON'S DISEASE
     Dosage: 60 MG/D
     Route: 048
     Dates: start: 19990102
  2. ELDEPRYL [Concomitant]
     Indication: PARKINSON'S DISEASE
     Dosage: 10 MG/D
     Route: 048
     Dates: start: 20010101
  3. MINULET [Concomitant]
     Indication: ORAL CONTRACEPTION
     Dosage: ETH EST 0.03 MG / GES 0.075 MG
     Route: 048

REACTIONS (4)
  - ANTI-THYROID ANTIBODY [None]
  - AUTOIMMUNE THYROIDITIS [None]
  - BLOOD THYROID STIMULATING HORMONE INCREASED [None]
  - THYROID FUNCTION TEST ABNORMAL [None]
